FAERS Safety Report 8060723-2 (Version None)
Quarter: 2012Q1

REPORT INFORMATION
  Report Type: 
  Country: None (occurrence: None)
  Receive Date: 20120120
  Receipt Date: 20120113
  Transmission Date: 20120608
  Serious: Yes (Disabling)
  Sender: FDA-Public Use
  Company Number: FR-B.I. PHARMACEUTICALS,INC./RIDGEFIELD-2012-FF-00055FF

PATIENT
  Age: 44 Year
  Sex: Female

DRUGS (6)
  1. ZOLPIDEM [Concomitant]
     Route: 048
  2. PRAMIPEXOLE DIHYDROCHLORIDE [Suspect]
     Dosage: 1.4 MG
     Route: 048
     Dates: start: 20090501
  3. NOZINAN 4% [Concomitant]
     Dosage: 20 DROPS PAR DAY
     Route: 048
  4. LEXOMIL [Concomitant]
  5. PRAMIPEXOLE DIHYDROCHLORIDE [Suspect]
     Dosage: 0.52 MG
     Route: 048
     Dates: start: 20110901
  6. PRAMIPEXOLE DIHYDROCHLORIDE [Suspect]
     Indication: RESTLESS LEGS SYNDROME
     Route: 048
     Dates: start: 20070101

REACTIONS (11)
  - SOMNOLENCE [None]
  - HYPERSEXUALITY [None]
  - ASTHENIA [None]
  - AGITATION [None]
  - HYPERPHAGIA [None]
  - DELUSIONAL DISORDER, PERSECUTORY TYPE [None]
  - AMNESIA [None]
  - VISUAL IMPAIRMENT [None]
  - WEIGHT DECREASED [None]
  - ABNORMAL BEHAVIOUR [None]
  - SLEEP DISORDER [None]
